FAERS Safety Report 8168136-X (Version None)
Quarter: 2012Q1

REPORT INFORMATION
  Report Type: 
  Country: None (occurrence: None)
  Receive Date: 20120222
  Receipt Date: 20120207
  Transmission Date: 20120608
  Serious: Yes (Other)
  Sender: FDA-Public Use
  Company Number: DSJ-2012-02534

PATIENT
  Sex: 0

DRUGS (1)
  1. CEVIMELINE HYDROCHLORIDE [Suspect]
     Indication: SJOGREN'S SYNDROME
     Dosage: , PER ORAL
     Route: 048

REACTIONS (1)
  - INTERSTITIAL LUNG DISEASE [None]
